FAERS Safety Report 6018372-3 (Version None)
Quarter: 2008Q4

REPORT INFORMATION
  Report Type: 
  Country: None (occurrence: None)
  Receive Date: 20081223
  Receipt Date: 20081216
  Transmission Date: 20090506
  Serious: Yes (Hospitalization)
  Sender: FDA-Public Use
  Company Number: JP-AMGEN-US323553

PATIENT
  Sex: Male
  Weight: 55 kg

DRUGS (7)
  1. ENBREL [Suspect]
     Indication: RHEUMATOID ARTHRITIS
     Route: 058
     Dates: start: 20080519
  2. ENBREL [Suspect]
     Dosage: PREVIOUSLY ON LYOPHILIZED 25 MG TWICE WEEKLY
     Dates: start: 20080519, end: 20080705
  3. LIMETHASONE [Concomitant]
     Indication: RHEUMATOID ARTHRITIS
     Dosage: UNSPECIFIED MONTHLY
     Route: 042
     Dates: start: 20041008
  4. CYTOTEC [Concomitant]
     Route: 048
  5. RHEUMATREX [Concomitant]
     Indication: RHEUMATOID ARTHRITIS
     Dates: start: 20041001, end: 20080701
  6. PREDONINE [Concomitant]
     Indication: RHEUMATOID ARTHRITIS
     Route: 048
     Dates: start: 20051007
  7. VOLTAREN [Concomitant]
     Route: 048

REACTIONS (1)
  - PNEUMOTHORAX [None]
